FAERS Safety Report 8853365 (Version 1)
Quarter: 2012Q4

REPORT INFORMATION
  Report Type: 
  Country: PL (occurrence: PL)
  Receive Date: 20121022
  Receipt Date: 20121022
  Transmission Date: 20130627
  Serious: Yes (Other)
  Sender: FDA-Public Use
  Company Number: PL-ARROW-2012-18141

PATIENT
  Age: 1 Year
  Sex: Female

DRUGS (2)
  1. TACROLIMUS (UNKNOWN) [Suspect]
     Indication: IMMUNOSUPPRESSION
     Dosage: UNK
     Route: 065
  2. MYCOPHENOLATE MOFETIL (UNKNOWN) [Suspect]
     Indication: IMMUNOSUPPRESSION
     Dosage: UNK
     Route: 065

REACTIONS (4)
  - Thrombotic microangiopathy [Recovered/Resolved]
  - Haemolytic anaemia [Recovered/Resolved]
  - Haemochromatosis [Recovered/Resolved]
  - Bone marrow failure [Recovered/Resolved]
